FAERS Safety Report 9553146 (Version 1)
Quarter: 2013Q3

REPORT INFORMATION
  Report Type: Spontaneous
  Country: ZA (occurrence: ZA)
  Receive Date: 20130925
  Receipt Date: 20130925
  Transmission Date: 20140515
  Serious: Yes (Other)
  Sender: FDA-Public Use
  Company Number: ZA-009507513-1309ZAF008591

PATIENT
  Sex: 0

DRUGS (1)
  1. ESMERON [Suspect]

REACTIONS (3)
  - Cardiac output decreased [Recovered/Resolved]
  - Bronchospasm [Recovered/Resolved]
  - Blood pressure decreased [Recovered/Resolved]
